FAERS Safety Report 15915437 (Version 1)
Quarter: 2019Q1

REPORT INFORMATION
  Report Type: Spontaneous
  Country: US (occurrence: US)
  Receive Date: 20190204
  Receipt Date: 20190204
  Transmission Date: 20190417
  Serious: Yes (Other)
  Sender: FDA-Public Use
  Company Number: US-ABBVIE-18K-163-2606682-00

PATIENT
  Age: 66 Year
  Sex: Female
  Weight: 64.92 kg

DRUGS (4)
  1. HUMIRA [Suspect]
     Active Substance: ADALIMUMAB
     Indication: RHEUMATOID ARTHRITIS
  2. HUMIRA [Suspect]
     Active Substance: ADALIMUMAB
     Indication: PSORIATIC ARTHROPATHY
     Route: 058
     Dates: start: 2002
  3. ALLEGRA-D [Concomitant]
     Active Substance: FEXOFENADINE\PSEUDOEPHEDRINE
     Indication: HYPERSENSITIVITY
  4. SYNTHROID [Concomitant]
     Active Substance: LEVOTHYROXINE SODIUM
     Indication: HYPOTHYROIDISM

REACTIONS (12)
  - Skin papilloma [Not Recovered/Not Resolved]
  - Chills [Recovered/Resolved]
  - Yellow skin [Recovered/Resolved]
  - Device issue [Unknown]
  - Cataract [Unknown]
  - Skin cancer [Recovered/Resolved]
  - Pruritus generalised [Not Recovered/Not Resolved]
  - Skin cancer [Recovered/Resolved]
  - Device issue [Unknown]
  - Cataract [Unknown]
  - Cold sweat [Not Recovered/Not Resolved]
  - Skin cancer [Recovering/Resolving]

NARRATIVE: CASE EVENT DATE: 2010
